FAERS Safety Report 9011789 (Version 2)
Quarter: 2014Q2

REPORT INFORMATION
  Report Type: Spontaneous
  Country: US (occurrence: None)
  Receive Date: 20121228
  Receipt Date: 20140404
  Transmission Date: 20141212
  Serious: Yes (Hospitalization)
  Sender: FDA-Public Use
  Company Number: 1539834

PATIENT
  Age: 26 Year
  Sex: Female
  Weight: 53 kg

DRUGS (11)
  1. FENTANYL CITRATE [Suspect]
     Indication: SPINAL ANAESTHESIA
     Route: 037
  2. LIDOCAINE HYDROCHLORIDE [Suspect]
     Indication: EPIDURAL ANALGESIA
     Route: 008
  3. LACTATED RINGERS [Suspect]
     Indication: PRODUCT USED FOR UNKNOWN INDICATION
  4. SODIUM CHLORIDE [Suspect]
     Indication: ANAESTHESIA PROCEDURE
     Route: 008
  5. SUXAMETHONIUM CHLORIDE [Suspect]
     Indication: INDUCTION OF ANAESTHESIA
     Route: 042
  6. BUPIVACAINE HYDROCHLORIDE [Suspect]
     Indication: SPINAL ANAESTHESIA
     Route: 037
  7. CEFAZOLIN [Suspect]
     Indication: INFECTION PROPHYLAXIS
     Route: 042
  8. PROPOFOL [Suspect]
     Indication: INDUCTION OF ANAESTHESIA
     Route: 042
  9. OXYGEN [Suspect]
     Indication: OXYGEN SUPPLEMENTATION
  10. TERBUTALINE [Suspect]
     Indication: UTERINE HYPOTONUS
     Route: 042
  11. SODIUM CITRATE [Suspect]
     Indication: PRODUCT USED FOR UNKNOWN INDICATION
     Route: 048

REACTIONS (10)
  - Premature separation of placenta [None]
  - Maternal exposure during delivery [None]
  - Caesarean section [None]
  - Hypovolaemia [None]
  - Uterine atony [None]
  - Procedural haemorrhage [None]
  - Haematocrit decreased [None]
  - Uterine hypertonus [None]
  - Drug interaction [None]
  - Hypotension [None]
